FAERS Safety Report 9493124 (Version 1)
Quarter: 2013Q3

REPORT INFORMATION
  Report Type: Spontaneous
  Country: AU (occurrence: AU)
  Receive Date: 20130902
  Receipt Date: 20130902
  Transmission Date: 20140515
  Serious: Yes (Other)
  Sender: FDA-Public Use
  Company Number: AU-ROCHE-1268662

PATIENT
  Age: 61 Year
  Sex: Female
  Weight: 94.5 kg

DRUGS (9)
  1. RIBAVIRIN [Suspect]
     Indication: PRODUCT USED FOR UNKNOWN INDICATION
     Route: 065
     Dates: start: 20130705, end: 20130718
  2. PEGATRON [Suspect]
     Indication: PRODUCT USED FOR UNKNOWN INDICATION
     Route: 065
     Dates: start: 20130705, end: 20130718
  3. ASPIRIN [Concomitant]
     Route: 048
     Dates: start: 20100802
  4. CRESTOR [Concomitant]
     Route: 048
  5. KARVEA [Concomitant]
     Route: 048
  6. MOBIC [Concomitant]
     Route: 048
  7. PANADOL OSTEO [Concomitant]
     Route: 048
  8. PREDNISOLONE [Concomitant]
     Route: 048
  9. THYROXINE SODIUM [Concomitant]
     Route: 048

REACTIONS (1)
  - Alveolitis [Not Recovered/Not Resolved]
